FAERS Safety Report 4599529-5 (Version None)
Quarter: 2005Q1

REPORT INFORMATION
  Report Type: 
  Country: None (occurrence: None)
  Receive Date: 20050303
  Receipt Date: 20050218
  Transmission Date: 20050727
  Serious: Yes (Other)
  Sender: FDA-Public Use
  Company Number: HQWYE561024FEB05

PATIENT
  Age: 1 Day
  Sex: Male

DRUGS (1)
  1. PHENERGAN (PROMETHAZIINE HYDROCHLORIDE, TABLET) [Suspect]
     Indication: NAUSEA
     Dosage: TRANSPLACENTAL
     Route: 064

REACTIONS (3)
  - DRUG EXPOSURE DURING PREGNANCY [None]
  - DYSPHAGIA [None]
  - NEONATAL DISORDER [None]
